FAERS Safety Report 24012333 (Version 2)
Quarter: 2024Q3

REPORT INFORMATION
  Report Type: Spontaneous
  Country: US (occurrence: US)
  Receive Date: 20240625
  Receipt Date: 20240707
  Transmission Date: 20241017
  Serious: Yes (Other)
  Sender: PFIZER
  Company Number: US-PFIZER INC-202400200125

PATIENT
  Age: 60 Year
  Sex: Male

DRUGS (1)
  1. VELSIPITY [Suspect]
     Active Substance: ETRASIMOD ARGININE
     Dosage: UNK

REACTIONS (4)
  - Inflammatory bowel disease [Not Recovered/Not Resolved]
  - Rectal haemorrhage [Unknown]
  - Diabetes mellitus [Unknown]
  - Epiretinal membrane [Unknown]
